FAERS Safety Report 4268620-5 (Version None)
Quarter: 2004Q1

REPORT INFORMATION
  Report Type: 
  Country: None (occurrence: None)
  Receive Date: 20040108
  Receipt Date: 20031224
  Transmission Date: 20041129
  Serious: Yes (Other)
  Sender: FDA-Public Use
  Company Number: 200321795GDDC

PATIENT
  Age: 77 Year
  Sex: Male

DRUGS (5)
  1. RIFATER [Suspect]
     Indication: TUBERCULOSIS
     Dosage: PO
     Route: 048
     Dates: end: 20030906
  2. RIFAMPIN AND ISONIAZID [Suspect]
     Indication: TUBERCULOSIS
     Dosage: 2 X 300 MG PO
     Route: 048
     Dates: end: 20031116
  3. ETHAMBUTOL HCL [Concomitant]
  4. PYRIDOXINE [Concomitant]
  5. PROSTATIC MEDICATIONS [Concomitant]

REACTIONS (3)
  - BONE MARROW DEPRESSION [None]
  - FEELING ABNORMAL [None]
  - HAEMOLYTIC ANAEMIA [None]
